FAERS Safety Report 9455973 (Version 1)
Quarter: 2013Q3

REPORT INFORMATION
  Report Type: Spontaneous
  Country: US (occurrence: US)
  Receive Date: 20130813
  Receipt Date: 20130813
  Transmission Date: 20140515
  Serious: No
  Sender: FDA-Public Use
  Company Number: US-GALDERMA-US13000899

PATIENT
  Sex: Female

DRUGS (2)
  1. CLOBEX [Suspect]
     Indication: PSORIASIS
     Route: 061
     Dates: start: 2012
  2. CLOBEX [Concomitant]
     Indication: PSORIASIS
     Route: 061

REACTIONS (2)
  - Seborrhoea [Unknown]
  - Drug ineffective [Unknown]
